FAERS Safety Report 5833725-1 (Version None)
Quarter: 2008Q3

REPORT INFORMATION
  Report Type: 
  Country: None (occurrence: None)
  Receive Date: 20080722
  Receipt Date: 20070809
  Transmission Date: 20090109
  Serious: Yes (Other)
  Sender: FDA-Public Use
  Company Number: 2007BI016774

PATIENT
  Sex: Female
  Weight: 64.8644 kg

DRUGS (2)
  1. AVONEX [Suspect]
     Indication: MULTIPLE SCLEROSIS
     Dosage: 30 UG; QW; IM
     Route: 030
     Dates: start: 20070317
  2. SUPPLEMENTS (NOS) [Concomitant]

REACTIONS (7)
  - BALANCE DISORDER [None]
  - CONVULSION [None]
  - FATIGUE [None]
  - GAIT DISTURBANCE [None]
  - HEADACHE [None]
  - MENORRHAGIA [None]
  - PARAESTHESIA [None]
